FAERS Safety Report 9587742 (Version 1)
Quarter: 2013Q4

REPORT INFORMATION
  Report Type: Spontaneous
  Country: US (occurrence: US)
  Receive Date: 20131003
  Receipt Date: 20131003
  Transmission Date: 20140711
  Serious: No
  Sender: FDA-Public Use
  Company Number: US-COVIDIEN/TYCO HEALTHCARE/MALLINCKRODT-T201301887

PATIENT
  Age: 62 Year
  Sex: Male
  Weight: 61.22 kg

DRUGS (5)
  1. EXALGO EXTENDED RELEASE [Suspect]
     Indication: PAIN
     Dosage: 16 MG, QD
     Route: 048
     Dates: start: 201302
  2. HYDROCODONE [Concomitant]
     Indication: PAIN
     Dosage: 10 MG Q4H
     Route: 048
  3. NEUROTIN                           /00949202/ [Concomitant]
     Indication: PAIN
     Dosage: 800 MG, QID
     Route: 048
  4. XANAX [Concomitant]
     Indication: SLEEP DISORDER
     Dosage: .25 MG, QD
     Route: 048
  5. KLONOPIN [Concomitant]
     Indication: SLEEP DISORDER
     Dosage: .75 MG, QD
     Route: 048

REACTIONS (2)
  - Constipation [Not Recovered/Not Resolved]
  - Medication residue present [Unknown]
